FAERS Safety Report 16793423 (Version 1)
Quarter: 2019Q3

REPORT INFORMATION
  Report Type: Report from Study
  Country: None (occurrence: US)
  Receive Date: 20190911
  Receipt Date: 20190911
  Transmission Date: 20191005
  Serious: Yes (Hospitalization, Other)
  Sender: FDA-Public Use
  Company Number: US-ABBVIE-19K-163-2914479-00

PATIENT
  Sex: Female

DRUGS (1)
  1. HUMIRA [Suspect]
     Active Substance: ADALIMUMAB
     Indication: CROHN^S DISEASE
     Route: 058
     Dates: end: 201906

REACTIONS (3)
  - Myocardial infarction [Recovering/Resolving]
  - Transient ischaemic attack [Recovering/Resolving]
  - Myocardial haemorrhage [Recovering/Resolving]

NARRATIVE: CASE EVENT DATE: 2019
